FAERS Safety Report 20691116 (Version 1)
Quarter: 2022Q2

REPORT INFORMATION
  Report Type: Spontaneous
  Country: US (occurrence: US)
  Receive Date: 20220408
  Receipt Date: 20220408
  Transmission Date: 20220721
  Serious: No
  Sender: FDA-Public Use
  Company Number: US-PFIZER INC-202200114937

PATIENT
  Age: 55 Year
  Sex: Female

DRUGS (2)
  1. SOMAVERT [Suspect]
     Active Substance: PEGVISOMANT
     Dosage: UNK
  2. LANREOTIDE [Suspect]
     Active Substance: LANREOTIDE
     Dosage: UNK

REACTIONS (1)
  - Injection site mass [Unknown]
